FAERS Safety Report 8143623-9 (Version None)
Quarter: 2012Q1

REPORT INFORMATION
  Report Type: 
  Country: None (occurrence: None)
  Receive Date: 20120217
  Receipt Date: 20120113
  Transmission Date: 20120608
  Serious: No
  Sender: FDA-Public Use
  Company Number: US-GLAXOSMITHKLINE-A0961662A

PATIENT
  Age: 70 Year
  Sex: Male
  Weight: 97.7 kg

DRUGS (13)
  1. VOTRIENT [Suspect]
     Indication: PRODUCT USED FOR UNKNOWN INDICATION
     Dosage: 200MG SEE DOSAGE TEXT
     Route: 048
  2. GLIPIZIDE [Concomitant]
  3. AVODART [Concomitant]
  4. HYDRALAZINE HCL [Concomitant]
  5. MAGNESIUM [Concomitant]
  6. FISH OIL [Concomitant]
  7. CALCIUM [Concomitant]
  8. CELEXA [Concomitant]
  9. BYSTOLIC [Concomitant]
  10. LASIX [Concomitant]
  11. NORVASC [Concomitant]
  12. ATIVAN [Concomitant]
  13. RESTORIL [Concomitant]

REACTIONS (3)
  - HYPERTENSION [None]
  - MUSCLE SPASMS [None]
  - DIARRHOEA [None]
